FAERS Safety Report 7294744-4 (Version None)
Quarter: 2011Q1

REPORT INFORMATION
  Report Type: 
  Country: None (occurrence: None)
  Receive Date: 20110207
  Receipt Date: 20110121
  Transmission Date: 20110831
  Serious: Yes (Other)
  Sender: FDA-Public Use
  Company Number: 026417

PATIENT
  Sex: Female

DRUGS (2)
  1. CETIRIZINE (CETIRIZINE) [Suspect]
     Dosage: (5-20MG/DAY IN THE FIRST TRIMESTER OF PREGNANCY)
  2. LEVOCETIRIZINE (LEVOCETIRIZINE) [Suspect]
     Dosage: (5 MG, IN THE FIRST TRIMESTER)

REACTIONS (9)
  - CLEFT PALATE [None]
  - INGUINAL HERNIA [None]
  - MATERNAL DRUGS AFFECTING FOETUS [None]
  - AORTIC VALVE STENOSIS [None]
  - VENTRICULAR SEPTAL DEFECT [None]
  - FOOT DEFORMITY [None]
  - ABORTION INDUCED [None]
  - TRISOMY 18 [None]
  - ACROCHORDON [None]
